FAERS Safety Report 19829336 (Version 2)
Quarter: 2021Q4

REPORT INFORMATION
  Report Type: Report from Study
  Country: AR (occurrence: None)
  Receive Date: 20210914
  Receipt Date: 20211105
  Transmission Date: 20220304
  Serious: Yes (Other)
  Sender: FDA-Public Use
  Company Number: AR-MERCK HEALTHCARE KGAA-9264451

PATIENT
  Sex: Female

DRUGS (4)
  1. MAVENCLAD [Suspect]
     Active Substance: CLADRIBINE
     Indication: Multiple sclerosis
     Dosage: YEAR ONE MONTH ONE THERAPY: 1 TABLET DAILY FOR 5 DAYS
     Route: 048
     Dates: start: 20180416, end: 20180420
  2. MAVENCLAD [Suspect]
     Active Substance: CLADRIBINE
     Dosage: YEAR ONE MONTH TWO THERAPY: 1 TABLET DAILY FOR 5 DAYS
     Route: 048
     Dates: start: 20180514, end: 20180518
  3. MAVENCLAD [Suspect]
     Active Substance: CLADRIBINE
     Dosage: YEAR TWO MONTH ONE THERAPY: 1 TABLET DAILY FOR 5 DAYS
     Route: 048
     Dates: start: 20190416, end: 20190420
  4. MAVENCLAD [Suspect]
     Active Substance: CLADRIBINE
     Dosage: YEAR TWO MONTH ONE THERAPY: 1 TABLET DAILY FOR 5 DAYS
     Route: 048
     Dates: start: 20190514, end: 20190518

REACTIONS (1)
  - Cholelithiasis [Recovering/Resolving]
